FAERS Safety Report 9150599 (Version 1)
Quarter: 2013Q1

REPORT INFORMATION
  Report Type: Spontaneous
  Country: US (occurrence: US)
  Receive Date: 20130308
  Receipt Date: 20130308
  Transmission Date: 20140127
  Serious: No
  Sender: FDA-Public Use
  Company Number: US-GLAXOSMITHKLINE-A1004353A

PATIENT
  Age: 77 Year
  Sex: Female

DRUGS (2)
  1. NICORETTE [Suspect]
     Indication: EX-TOBACCO USER
  2. NICORETTE FRUIT CHILL OTC 4MG [Suspect]
     Indication: EX-TOBACCO USER

REACTIONS (1)
  - Dysgeusia [Unknown]
